FAERS Safety Report 5332495-3 (Version None)
Quarter: 2007Q2

REPORT INFORMATION
  Report Type: 
  Country: None (occurrence: None)
  Receive Date: 20070523
  Receipt Date: 20070516
  Transmission Date: 20071010
  Serious: Yes (Other)
  Sender: FDA-Public Use
  Company Number: US-SANOFI-SYNTHELABO-A03200703061

PATIENT
  Sex: Male

DRUGS (5)
  1. INSULIN [Concomitant]
     Dosage: UNK
     Route: 065
  2. HEPARIN [Concomitant]
     Dosage: UNK
     Route: 065
  3. AMBIEN [Suspect]
     Indication: INSOMNIA
     Route: 048
     Dates: start: 20070329
  4. DIANEAL [Concomitant]
     Dosage: UNK
     Route: 033
  5. DIANEAL [Concomitant]
     Route: 033

REACTIONS (2)
  - DISORIENTATION [None]
  - PERITONITIS BACTERIAL [None]
